FAERS Safety Report 8524153-9 (Version None)
Quarter: 2012Q3

REPORT INFORMATION
  Report Type: 
  Country: None (occurrence: None)
  Receive Date: 20120720
  Receipt Date: 20120716
  Transmission Date: 20120928
  Serious: Yes (Other)
  Sender: FDA-Public Use
  Company Number: AU-PFIZER INC-2012131484

PATIENT
  Age: 69 Year
  Sex: Female

DRUGS (4)
  1. LIPITOR [Concomitant]
     Dosage: UNK, AT NIGHT
  2. XANAX [Suspect]
     Indication: ANXIETY
     Dosage: 1 MG, 2X/DAY
  3. XANAX [Suspect]
     Indication: PANIC ATTACK
  4. ZANTAC [Concomitant]
     Dosage: 300 MG, 2X/DAY

REACTIONS (8)
  - MYOCARDIAL INFARCTION [None]
  - LOSS OF CONSCIOUSNESS [None]
  - TINNITUS [None]
  - ANXIETY [None]
  - DIZZINESS [None]
  - WEIGHT DECREASED [None]
  - VERTIGO [None]
  - CHEST DISCOMFORT [None]
